FAERS Safety Report 7709763-0 (Version None)
Quarter: 2011Q3

REPORT INFORMATION
  Report Type: 
  Country: None (occurrence: None)
  Receive Date: 20110825
  Receipt Date: 20100827
  Transmission Date: 20111222
  Serious: No
  Sender: FDA-Public Use
  Company Number: US-BAYER-201034695NA

PATIENT
  Age: 41 Year
  Sex: Female

DRUGS (2)
  1. YAZ [Suspect]
     Indication: CONTRACEPTION
     Dosage: UNK
     Dates: start: 20080101
  2. BIOTIN [Concomitant]

REACTIONS (3)
  - DRY SKIN [None]
  - HAIR TEXTURE ABNORMAL [None]
  - ALOPECIA [None]
